FAERS Safety Report 12631458 (Version 2)
Quarter: 2016Q3

REPORT INFORMATION
  Report Type: Spontaneous
  Country: US (occurrence: US)
  Receive Date: 20160808
  Receipt Date: 20160808
  Transmission Date: 20161109
  Serious: No
  Sender: FDA-Public Use
  Company Number: US-BEH-2015054000

PATIENT
  Sex: Male
  Weight: 36 kg

DRUGS (8)
  1. CEPHALEXIN. [Concomitant]
     Active Substance: CEPHALEXIN
  2. LMX [Concomitant]
     Active Substance: LIDOCAINE
  3. HIZENTRA [Suspect]
     Active Substance: HUMAN IMMUNOGLOBULIN G
     Indication: IMMUNODEFICIENCY
     Route: 058
  4. ROCEPHIN [Concomitant]
     Active Substance: CEFTRIAXONE SODIUM
  5. EPIPEN [Concomitant]
     Active Substance: EPINEPHRINE
     Indication: ANAPHYLACTIC REACTION
  6. SINGULAIR [Concomitant]
     Active Substance: MONTELUKAST SODIUM
  7. AMOXICILLIN. [Concomitant]
     Active Substance: AMOXICILLIN
  8. DIPHENHYDRAMINE. [Concomitant]
     Active Substance: DIPHENHYDRAMINE

REACTIONS (2)
  - Infusion site erythema [Unknown]
  - Infusion site irritation [Unknown]
